FAERS Safety Report 21455277 (Version 1)
Quarter: 2022Q4

REPORT INFORMATION
  Report Type: Spontaneous
  Country: ZA (occurrence: ZA)
  Receive Date: 20221014
  Receipt Date: 20221014
  Transmission Date: 20230112
  Serious: Yes (Hospitalization, Other)
  Sender: FDA-Public Use
  Company Number: ZA-LUPIN PHARMACEUTICALS INC.-2022-11884

PATIENT

DRUGS (8)
  1. AMLODIPINE BESYLATE [Suspect]
     Active Substance: AMLODIPINE BESYLATE
     Indication: Hypertension
     Dosage: 5 MG
     Route: 048
  2. ESCITALOPRAM OXALATE [Suspect]
     Active Substance: ESCITALOPRAM OXALATE
     Indication: Depression
     Dosage: 20 MG
     Route: 048
  3. AMIODARONE [Suspect]
     Active Substance: AMIODARONE
     Indication: Arrhythmia
     Dosage: 100 MG
     Route: 048
  4. ACETAMINOPHEN\CODEINE PHOSPHATE\PROMETHAZINE HYDROCHLORIDE [Suspect]
     Active Substance: ACETAMINOPHEN\CODEINE PHOSPHATE\PROMETHAZINE HYDROCHLORIDE
     Indication: Pain
     Dosage: UNK
     Route: 065
  5. LEVOTHYROXINE [Suspect]
     Active Substance: LEVOTHYROXINE
     Indication: Hypothyroidism
     Dosage: 100 MCG
     Route: 048
  6. ESOMEPRAZOLE [Suspect]
     Active Substance: ESOMEPRAZOLE
     Indication: Ulcer
     Dosage: 40 MG
     Route: 048
  7. TRAMADOL HYDROCHLORIDE [Suspect]
     Active Substance: TRAMADOL HYDROCHLORIDE
     Indication: Pain
     Dosage: 100 MG
     Route: 048
  8. ATORVASTATIN [Suspect]
     Active Substance: ATORVASTATIN
     Indication: Blood cholesterol abnormal
     Dosage: 40 MG
     Route: 048

REACTIONS (1)
  - Pneumothorax [Unknown]
